FAERS Safety Report 11831253 (Version 1)
Quarter: 2015Q4

REPORT INFORMATION
  Report Type: Spontaneous
  Country: US (occurrence: US)
  Receive Date: 20151214
  Receipt Date: 20151214
  Transmission Date: 20160305
  Serious: No
  Sender: FDA-Public Use
  Company Number: US-TAKEDA-2015TUS017714

PATIENT
  Sex: Female

DRUGS (5)
  1. CONTRAVE [Suspect]
     Active Substance: BUPROPION HYDROCHLORIDE\NALTREXONE HYDROCHLORIDE
     Dosage: 8/90 MG, QID
     Route: 048
     Dates: start: 20151130
  2. CONTRAVE [Suspect]
     Active Substance: BUPROPION HYDROCHLORIDE\NALTREXONE HYDROCHLORIDE
     Indication: WEIGHT CONTROL
     Dosage: 8/90 MG, QD
     Route: 048
     Dates: start: 20151109, end: 20151115
  3. CONTRAVE [Suspect]
     Active Substance: BUPROPION HYDROCHLORIDE\NALTREXONE HYDROCHLORIDE
     Dosage: 8/90 MG, BID
     Route: 048
     Dates: start: 20151116, end: 20151122
  4. CONTRAVE [Suspect]
     Active Substance: BUPROPION HYDROCHLORIDE\NALTREXONE HYDROCHLORIDE
     Dosage: 8/90 MG, TID
     Route: 048
     Dates: start: 20151123, end: 20151129
  5. PREVACID [Suspect]
     Active Substance: LANSOPRAZOLE
     Indication: ABDOMINAL PAIN UPPER
     Dosage: UNK
     Route: 048
     Dates: start: 201511

REACTIONS (3)
  - Abdominal pain upper [Not Recovered/Not Resolved]
  - Off label use [Unknown]
  - Nausea [Not Recovered/Not Resolved]

NARRATIVE: CASE EVENT DATE: 201511
